FAERS Safety Report 4471445-9 (Version None)
Quarter: 2004Q4

REPORT INFORMATION
  Report Type: 
  Country: None (occurrence: None)
  Receive Date: 20041012
  Receipt Date: 20040823
  Transmission Date: 20050328
  Serious: Yes (Hospitalization)
  Sender: FDA-Public Use
  Company Number: DE-BRISTOL-MYERS SQUIBB COMPANY-12679569

PATIENT
  Age: 68 Year
  Sex: Male
  Weight: 95 kg

DRUGS (4)
  1. TAXOL [Suspect]
     Indication: BLADDER CANCER
     Dosage: NEXT DOSE: 30-AUG-2004 (374.5 MG)
     Route: 042
     Dates: start: 20040721, end: 20040721
  2. GEMCITABINE [Suspect]
     Indication: BLADDER CANCER
     Dosage: ALSO ADMINISTERED ON 21-JUL-2004 (2140 MG) NEXT DOSE: 30-AUG-2004 (2140 MG)
     Route: 042
     Dates: start: 20040804, end: 20040804
  3. FUROSEMIDE [Concomitant]
     Indication: LYMPHOEDEMA
     Route: 048
     Dates: start: 20040821, end: 20040823
  4. TETRAHYDROCANNABINOL [Concomitant]
     Indication: PAIN
     Route: 048
     Dates: start: 20040822, end: 20040901

REACTIONS (1)
  - HYDRONEPHROSIS [None]
